FAERS Safety Report 5271484-4 (Version None)
Quarter: 2007Q1

REPORT INFORMATION
  Report Type: 
  Country: None (occurrence: None)
  Receive Date: 20070316
  Receipt Date: 20070304
  Transmission Date: 20070707
  Serious: Yes (Hospitalization)
  Sender: FDA-Public Use
  Company Number: 2007309836

PATIENT
  Sex: Male
  Weight: 84.4 kg

DRUGS (3)
  1. ROGAINE [Suspect]
     Indication: ALOPECIA
     Dosage: 1ML TWICE A DAY (1 ML, 2 IN 1 D), TOPICAL
     Route: 061
  2. DIGOXIN [Concomitant]
  3. COUMADIN [Concomitant]

REACTIONS (2)
  - DIZZINESS [None]
  - EUPHORIC MOOD [None]
